FAERS Safety Report 19929560 (Version 2)
Quarter: 2022Q1

REPORT INFORMATION
  Report Type: Spontaneous
  Country: IT (occurrence: IT)
  Receive Date: 20211007
  Receipt Date: 20220110
  Transmission Date: 20220423
  Serious: Yes (Hospitalization, Other)
  Sender: FDA-Public Use
  Company Number: IT-NOVARTISPH-NVSC2021IT228790

PATIENT
  Age: 33 Year
  Sex: Female
  Weight: 48 kg

DRUGS (3)
  1. AZITHROMYCIN DIHYDRATE [Suspect]
     Active Substance: AZITHROMYCIN DIHYDRATE
     Indication: COVID-19
     Dosage: UNK
     Route: 065
  2. DEXAMETHASONE [Suspect]
     Active Substance: DEXAMETHASONE
     Indication: COVID-19
     Dosage: 6 MG, QD (1/DAY)
     Route: 065
  3. ENOXAPARIN [Suspect]
     Active Substance: ENOXAPARIN
     Indication: COVID-19
     Dosage: 0.5 MG/KG, QD (1/DAY)
     Route: 065

REACTIONS (5)
  - Encephalopathy [Unknown]
  - Blood bilirubin increased [Recovering/Resolving]
  - General physical health deterioration [Unknown]
  - Product use in unapproved indication [Unknown]
  - Off label use [Unknown]
